FAERS Safety Report 5586105-0 (Version None)
Quarter: 2008Q1

REPORT INFORMATION
  Report Type: 
  Country: None (occurrence: None)
  Receive Date: 20080109
  Receipt Date: 20050428
  Transmission Date: 20080703
  Serious: Yes (Disabling, Congenital Anomaly)
  Sender: FDA-Public Use
  Company Number: FR-MERCK-0504FRA00097

PATIENT
  Age: 0 Day
  Sex: Male

DRUGS (5)
  1. NOROXIN [Suspect]
     Indication: CYSTITIS
     Route: 064
     Dates: start: 20030601, end: 20030601
  2. NOROXIN [Suspect]
     Route: 064
     Dates: start: 20030501, end: 20030501
  3. HELICIDINE [Suspect]
     Route: 064
     Dates: start: 20031001
  4. MAGNESIUM LACTATE AND PYRIDOXINE HYDROCHLORIDE [Suspect]
     Route: 064
     Dates: start: 20031101
  5. FOLIC ACID [Suspect]
     Route: 064
     Dates: start: 20031001

REACTIONS (3)
  - DYSMORPHISM [None]
  - HEART DISEASE CONGENITAL [None]
  - LIMB MALFORMATION [None]
